FAERS Safety Report 21857989 (Version 8)
Quarter: 2024Q3

REPORT INFORMATION
  Report Type: Spontaneous
  Country: BR (occurrence: BR)
  Receive Date: 20230113
  Receipt Date: 20240828
  Transmission Date: 20241016
  Serious: Yes (Hospitalization, Other)
  Sender: CELLTRION
  Company Number: BR-CELLTRION INC.-2022BR021958

PATIENT

DRUGS (5)
  1. INFLIXIMAB [Suspect]
     Active Substance: INFLIXIMAB
     Indication: Crohn^s disease
     Dosage: UNK
     Route: 042
     Dates: start: 20230413
  2. INFLIXIMAB [Suspect]
     Active Substance: INFLIXIMAB
     Dosage: UNK
     Route: 042
     Dates: start: 20230620
  3. INFLIXIMAB [Suspect]
     Active Substance: INFLIXIMAB
     Dosage: UNK
     Route: 042
     Dates: start: 20221201
  4. AMITRIPTYLINE [Concomitant]
     Active Substance: AMITRIPTYLINE
     Indication: Depression
     Dosage: 1 PILL /DAY (START: ONE MONTHE AGO )
     Route: 048
  5. AZATHIOPRINE [Concomitant]
     Active Substance: AZATHIOPRINE
     Dosage: UNK

REACTIONS (20)
  - Musculoskeletal stiffness [Unknown]
  - Radial nerve palsy [Unknown]
  - Trismus [Unknown]
  - Burning sensation [Unknown]
  - Pain in extremity [Unknown]
  - Blindness [Unknown]
  - Lip oedema [Unknown]
  - Abdominal pain [Unknown]
  - Arthralgia [Unknown]
  - Headache [Unknown]
  - Fatigue [Unknown]
  - Dyspnoea [Unknown]
  - Colostomy [Unknown]
  - Gait disturbance [Unknown]
  - Weight decreased [Unknown]
  - Product availability issue [Unknown]
  - Treatment delayed [Unknown]
  - Therapy interrupted [Unknown]
  - Product administration error [Unknown]
  - Therapy cessation [Unknown]
